FAERS Safety Report 13995110 (Version 1)
Quarter: 2017Q3

REPORT INFORMATION
  Report Type: Other
  Country: CA (occurrence: CA)
  Receive Date: 20170921
  Receipt Date: 20170921
  Transmission Date: 20171128
  Serious: Yes (Life-Threatening, Other)
  Sender: FDA-Public Use
  Company Number: CA-APOTEX-2017AP018249

PATIENT
  Sex: Female

DRUGS (1)
  1. APO-CARBAMAZEPINE CR [Suspect]
     Active Substance: CARBAMAZEPINE
     Indication: SEIZURE
     Dosage: UNK
     Route: 065

REACTIONS (9)
  - Ear swelling [Recovered/Resolved]
  - Respiratory distress [Recovered/Resolved]
  - Renal impairment [Recovered/Resolved]
  - Erythema [Recovered/Resolved]
  - Drug reaction with eosinophilia and systemic symptoms [Recovered/Resolved]
  - Pyrexia [Recovered/Resolved]
  - Swelling face [Recovered/Resolved]
  - Generalised erythema [Recovered/Resolved]
  - Rash erythematous [Recovered/Resolved]
